FAERS Safety Report 7650220-8 (Version None)
Quarter: 2011Q3

REPORT INFORMATION
  Report Type: 
  Country: None (occurrence: None)
  Receive Date: 20110802
  Receipt Date: 20110719
  Transmission Date: 20111222
  Serious: Yes (Other)
  Sender: FDA-Public Use
  Company Number: PT-MYLANLABS-2011S1015058

PATIENT
  Age: 36 Year
  Sex: Female
  Weight: 55 kg

DRUGS (1)
  1. CIPROFLOXACIN [Suspect]
     Indication: URINARY TRACT INFECTION
     Route: 048
     Dates: start: 20110625, end: 20110702

REACTIONS (9)
  - NAUSEA [None]
  - AGITATION [None]
  - DECREASED APPETITE [None]
  - DIZZINESS [None]
  - ABDOMINAL PAIN [None]
  - CONFUSIONAL STATE [None]
  - VISUAL IMPAIRMENT [None]
  - FATIGUE [None]
  - FLATULENCE [None]
